FAERS Safety Report 4838193-4 (Version None)
Quarter: 2005Q4

REPORT INFORMATION
  Report Type: 
  Country: None (occurrence: None)
  Receive Date: 20051122
  Receipt Date: 20051108
  Transmission Date: 20060501
  Serious: Yes (Hospitalization)
  Sender: FDA-Public Use
  Company Number: SUS1-2005-00830

PATIENT
  Age: 23 Year
  Sex: Male

DRUGS (3)
  1. PENTASA [Suspect]
     Indication: CROHN'S DISEASE
     Dosage: 1000 MG DAILY, ORAL
     Route: 048
     Dates: start: 20050921, end: 20050925
  2. FLAGYL [Suspect]
     Indication: CROHN'S DISEASE
     Dosage: 1500 MG DAILY, ORAL
     Route: 048
     Dates: start: 20050921, end: 20050925
  3. TIORFAN (ACETORPHAN) [Suspect]
     Indication: CROHN'S DISEASE
     Dosage: 100 MG, DAILY, ORAL
     Route: 048
     Dates: start: 20050901, end: 20050901

REACTIONS (13)
  - DYSPHAGIA [None]
  - EOSINOPHIL PERCENTAGE INCREASED [None]
  - LEUKOCYTOSIS [None]
  - LIP EROSION [None]
  - LYMPHOCYTE PERCENTAGE DECREASED [None]
  - MONOCYTE PERCENTAGE INCREASED [None]
  - NEUTROPHIL PERCENTAGE INCREASED [None]
  - PALATAL DISORDER [None]
  - PENILE ULCERATION [None]
  - PHIMOSIS [None]
  - RASH MACULO-PAPULAR [None]
  - SKIN EXFOLIATION [None]
  - STEVENS-JOHNSON SYNDROME [None]
